FAERS Safety Report 9231767 (Version 2)
Quarter: 2013Q2

REPORT INFORMATION
  Report Type: Spontaneous
  Country: US (occurrence: US)
  Receive Date: 20130415
  Receipt Date: 20130513
  Transmission Date: 20140414
  Serious: Yes (Hospitalization, Other)
  Sender: FDA-Public Use
  Company Number: US-PFIZER INC-2013112299

PATIENT
  Age: 32 Year
  Sex: Male
  Weight: 78.91 kg

DRUGS (1)
  1. XYNTHA [Suspect]
     Indication: FACTOR VIII DEFICIENCY
     Dosage: 50 IU/KG, AS NEEDED (ON DEMAND PER INFUSION)

REACTIONS (2)
  - Disease complication [Unknown]
  - Haemorrhage [Unknown]
